FAERS Safety Report 21972350 (Version 1)
Quarter: 2023Q1

REPORT INFORMATION
  Report Type: Spontaneous
  Country: US (occurrence: None)
  Receive Date: 20230207
  Receipt Date: 20230207
  Transmission Date: 20230418
  Serious: Yes (Other)
  Sender: FDA-Public Use
  Company Number: None

PATIENT
  Age: 59 Year
  Sex: Female

DRUGS (8)
  1. MAVYRET [Suspect]
     Active Substance: GLECAPREVIR\PIBRENTASVIR
     Indication: Hepatitis C
     Dosage: 300--120 DAILY BY MOUTH
     Route: 048
     Dates: start: 20221227
  2. ASPIRIN [Concomitant]
     Active Substance: ASPIRIN
  3. ESTRADIOL [Concomitant]
     Active Substance: ESTRADIOL
  4. FLUOXETINE [Concomitant]
     Active Substance: FLUOXETINE HYDROCHLORIDE
  5. MONTELUKAST [Concomitant]
     Active Substance: MONTELUKAST SODIUM
  6. OMEPRAZOLE [Concomitant]
     Active Substance: OMEPRAZOLE
  7. PRAMIPEXOLE [Concomitant]
     Active Substance: PRAMIPEXOLE
  8. PROAIR HFA INH [Concomitant]

REACTIONS (4)
  - Nausea [None]
  - Diarrhoea [None]
  - Rash pruritic [None]
  - Stress [None]

NARRATIVE: CASE EVENT DATE: 20230207
